FAERS Safety Report 4933948-X (Version None)
Quarter: 2006Q1

REPORT INFORMATION
  Report Type: 
  Country: None (occurrence: None)
  Receive Date: 20060303
  Receipt Date: 20060221
  Transmission Date: 20060701
  Serious: Yes (Death)
  Sender: FDA-Public Use
  Company Number: GXKR2006GB01135

PATIENT
  Age: 55 Year
  Sex: Male

DRUGS (1)
  1. CITALOPRAM HYDROBROMIDE [Suspect]
     Dosage: ORAL
     Route: 048
     Dates: start: 20060123

REACTIONS (2)
  - COMPLETED SUICIDE [None]
  - ROAD TRAFFIC ACCIDENT [None]
